FAERS Safety Report 8793897 (Version 1)
Quarter: 2012Q4

REPORT INFORMATION
  Report Type: 
  Country: FR (occurrence: FR)
  Receive Date: 20120917
  Receipt Date: 20120917
  Transmission Date: 20130627
  Serious: Yes (Hospitalization)
  Sender: FDA-Public Use
  Company Number: FR-ROCHE-1116833

PATIENT
  Sex: Female
  Weight: 60 kg

DRUGS (3)
  1. HERCEPTIN [Suspect]
     Indication: GASTRIC CANCER
     Route: 042
     Dates: start: 20120820, end: 20120820
  2. FLUOROURACIL [Concomitant]
     Indication: GASTRIC CANCER
     Route: 065
     Dates: start: 20120821, end: 20120825
  3. CISPLATIN [Concomitant]
     Indication: GASTRIC CANCER
     Route: 042
     Dates: start: 20120821, end: 20120821

REACTIONS (2)
  - Hyperthermia [Recovered/Resolved]
  - Tremor [Recovered/Resolved]
